FAERS Safety Report 8240352-8 (Version None)
Quarter: 2012Q1

REPORT INFORMATION
  Report Type: 
  Country: None (occurrence: None)
  Receive Date: 20120328
  Receipt Date: 20120316
  Transmission Date: 20120608
  Serious: Yes (Congenital Anomaly, Other)
  Sender: FDA-Public Use
  Company Number: FR-BRISTOL-MYERS SQUIBB COMPANY-16482523

PATIENT

DRUGS (3)
  1. REYATAZ [Suspect]
     Route: 064
  2. TRUVADA [Suspect]
     Route: 064
  3. NORVIR [Suspect]
     Route: 064

REACTIONS (1)
  - FOETAL MALFORMATION [None]
